FAERS Safety Report 10166880 (Version 2)
Quarter: 2014Q3

REPORT INFORMATION
  Report Type: Spontaneous
  Country: IT (occurrence: None)
  Receive Date: 20140508
  Receipt Date: 20140702
  Transmission Date: 20150326
  Serious: Yes (Life-Threatening)
  Sender: FDA-Public Use
  Company Number: SYM-2014-20497

PATIENT
  Age: 70 Year
  Sex: Male
  Weight: 100 kg

DRUGS (8)
  1. CARDICOR (BISOPROLOL FUMARATE) (BISOPROLOL FUMARATE) [Concomitant]
  2. CELSENTRI (MARAVIROC) (MARAVIROC) [Concomitant]
  3. TIKLID (TICILOPIDINE HYDROCHLORIDE) (TICLOPIDINE HYDROCHLORIDE) [Concomitant]
  4. VIREAD (TENOFOVIR DISOPROXIL FYMARATE) (TENOFOVIR DISOPROXIL FUMARATE) [Concomitant]
  5. MACUGEN [Suspect]
     Active Substance: PEGAPTANIB SODIUM
     Indication: AGE-RELATED MACULAR DEGENERATION
     Dosage: CYCLIC
     Route: 031
     Dates: start: 20100726, end: 20130506
  6. IBUSTRIN (INDOBUFEN SODIUM) (INDOBUFEN SODIUM) [Concomitant]
  7. PROVISACOR (ROSUVASTATIN CALCIUM) (ROSUVASTATIN CALCIUM) [Concomitant]
  8. ISENTRESS (RALTEGRAVIR POTASSIUM) (RALTEGRAVIR POTASSIUM) [Concomitant]

REACTIONS (1)
  - Acute myocardial infarction [None]

NARRATIVE: CASE EVENT DATE: 20131026
